FAERS Safety Report 7340978-X (Version None)
Quarter: 2011Q1

REPORT INFORMATION
  Report Type: 
  Country: None (occurrence: None)
  Receive Date: 20110309
  Receipt Date: 20110120
  Transmission Date: 20110831
  Serious: No
  Sender: FDA-Public Use
  Company Number: US-ABBOTT-11P-163-0700202-00

PATIENT
  Sex: Female
  Weight: 52.21 kg

DRUGS (1)
  1. LUPRON DEPOT [Suspect]
     Indication: ENDOMETRIOSIS
     Dates: start: 20101101

REACTIONS (5)
  - PAIN IN JAW [None]
  - FATIGUE [None]
  - ANGER [None]
  - HOT FLUSH [None]
  - BONE DISORDER [None]
